FAERS Safety Report 8576438 (Version 2)
Quarter: 2012Q4

REPORT INFORMATION
  Report Type: 
  Country: US (occurrence: US)
  Receive Date: 20120523
  Receipt Date: 20121128
  Transmission Date: 20130627
  Serious: Yes (Other)
  Sender: FDA-Public Use
  Company Number: PHEH2012US010210

PATIENT
  Age: 77 Year
  Sex: Female
  Weight: 63.39 kg

DRUGS (2)
  1. GLEEVEC [Suspect]
     Indication: GASTROINTESTINAL STROMAL TUMOUR
     Dosage: UNK
     Route: 048
     Dates: start: 2007, end: 200810
  2. GLEEVEC [Suspect]
     Dosage: 400 mg daily
     Route: 048
     Dates: start: 20081106

REACTIONS (3)
  - Metastases to liver [Unknown]
  - Metastases to stomach [Unknown]
  - Furuncle [Not Recovered/Not Resolved]
